FAERS Safety Report 5949176-5 (Version None)
Quarter: 2008Q4

REPORT INFORMATION
  Report Type: 
  Country: None (occurrence: None)
  Receive Date: 20081111
  Receipt Date: 20081105
  Transmission Date: 20090506
  Serious: Yes (Other)
  Sender: FDA-Public Use
  Company Number: FR-GENENTECH-270976

PATIENT
  Sex: Male

DRUGS (2)
  1. RAPTIVA [Suspect]
     Indication: PSORIASIS
     Dosage: UNK
  2. CHELATING AGENTS [Concomitant]
     Indication: HAEMOCHROMATOSIS
     Dosage: UNK

REACTIONS (1)
  - HEPATIC CIRRHOSIS [None]
